FAERS Safety Report 9165715 (Version 1)
Quarter: 2013Q1

REPORT INFORMATION
  Report Type: Spontaneous
  Country: US (occurrence: None)
  Receive Date: 20130228
  Receipt Date: 20130228
  Transmission Date: 20140127
  Serious: Yes (Hospitalization)
  Sender: FDA-Public Use
  Company Number: ESP-CLT-2013002

PATIENT
  Age: 2 Year
  Sex: Male

DRUGS (6)
  1. CYSTADANE [Suspect]
     Route: 048
     Dates: start: 20090510
  2. BETAINE ANHYDROUS [Suspect]
  3. ORAL POWDER [Suspect]
  4. FOLIC ACID [Concomitant]
  5. CARNITINE [Concomitant]
  6. VITAMIN B12 [Concomitant]

REACTIONS (4)
  - Gastroenteritis [None]
  - Platelet count increased [None]
  - Vomiting [None]
  - Diarrhoea [None]
